FAERS Safety Report 14633765 (Version 1)
Quarter: 2018Q1

REPORT INFORMATION
  Report Type: Spontaneous
  Country: JP (occurrence: JP)
  Receive Date: 20180314
  Receipt Date: 20180314
  Transmission Date: 20180509
  Serious: Yes (Other)
  Sender: FDA-Public Use
  Company Number: JP-SUN PHARMACEUTICAL INDUSTRIES LTD-2017RR-144893

PATIENT
  Age: 39 Year
  Sex: Male

DRUGS (2)
  1. BORTEZOMIB [Suspect]
     Active Substance: BORTEZOMIB
     Indication: POEMS SYNDROME
     Dosage: 1.3 MG/M2, ON DAYS 1, 4, AND 8
     Route: 042
  2. DEXAMETHASONE. [Suspect]
     Active Substance: DEXAMETHASONE
     Indication: POEMS SYNDROME
     Dosage: 40 MG, 11 PLUS 40MG OF DEXAMETHASONE ON DAYS 1 THROUGH 4 + 9 THROUGH 12 (CYCLE 1), 21-DAY CYCLE
     Route: 048

REACTIONS (3)
  - Pain in extremity [Recovering/Resolving]
  - Subileus [Recovering/Resolving]
  - Liver disorder [Recovering/Resolving]
